FAERS Safety Report 24968118 (Version 2)
Quarter: 2025Q1

REPORT INFORMATION
  Report Type: Spontaneous
  Country: US (occurrence: US)
  Receive Date: 20250214
  Receipt Date: 20250304
  Transmission Date: 20250408
  Serious: Yes (Other)
  Sender: AVEO PHARMACEUTICALS
  Company Number: US-AVEO PHARMACEUTICALS, INC.-2025-AVEO-US000059

PATIENT
  Sex: Female

DRUGS (32)
  1. FOTIVDA [Suspect]
     Active Substance: TIVOZANIB HYDROCHLORIDE
     Indication: Renal cell carcinoma
     Dosage: 1.34 MG, DAILY FOR 21 DAYS WITH 7 DAYS OFF (28-DAY CYCLE)
     Dates: start: 20240823
  2. ASPIRIN [Concomitant]
     Active Substance: ASPIRIN
  3. ATORVASTATIN [Concomitant]
     Active Substance: ATORVASTATIN
  4. CETIRIZINE [Concomitant]
     Active Substance: CETIRIZINE HYDROCHLORIDE
  5. CINACALCET [Concomitant]
     Active Substance: CINACALCET
  6. COCONUT OIL [Concomitant]
     Active Substance: COCONUT OIL
  7. DEXAMETHASONE [Concomitant]
     Active Substance: DEXAMETHASONE
  8. DOCUSATE [Concomitant]
     Active Substance: DOCUSATE
  9. DOCUSATE [Concomitant]
     Active Substance: DOCUSATE
  10. FLONASE [Concomitant]
     Active Substance: FLUTICASONE PROPIONATE
  11. FLONASE [Concomitant]
     Active Substance: FLUTICASONE PROPIONATE
  12. FLUCONAZOLE [Concomitant]
     Active Substance: FLUCONAZOLE
  13. GABAPENTIN [Concomitant]
     Active Substance: GABAPENTIN
  14. LISINOPRIL [Concomitant]
     Active Substance: LISINOPRIL
  15. LEVOTHYROXINE SODIUM [Concomitant]
     Active Substance: LEVOTHYROXINE SODIUM
  16. LOPERAMIDE [Concomitant]
     Active Substance: LOPERAMIDE
  17. MAGNESIUM OXIDE [Concomitant]
     Active Substance: MAGNESIUM OXIDE
  18. NEPHRO VITE RX [Concomitant]
     Active Substance: ASCORBIC ACID\BIOTIN\CALCIUM PANTOTHENATE\CYANOCOBALAMIN\FOLIC ACID\NIACINAMIDE\PYRIDOXINE HYDROCHLO
  19. NORCO [Concomitant]
     Active Substance: ACETAMINOPHEN\HYDROCODONE BITARTRATE
  20. Oil of oregano [Concomitant]
  21. PANTOPRAZOLE [Concomitant]
     Active Substance: PANTOPRAZOLE
  22. PROCHLORPERAZINE [Concomitant]
     Active Substance: PROCHLORPERAZINE
  23. SENSIPAR [Concomitant]
     Active Substance: CINACALCET HYDROCHLORIDE
  24. SEVELAMER CARBONATE [Concomitant]
     Active Substance: SEVELAMER CARBONATE
  25. TRESIBA [Concomitant]
     Active Substance: INSULIN DEGLUDEC
  26. VASCEPA [Concomitant]
     Active Substance: ICOSAPENT ETHYL
  27. ZOFRAN [Concomitant]
     Active Substance: ONDANSETRON HYDROCHLORIDE
  28. HUMALOG [Concomitant]
     Active Substance: INSULIN LISPRO
  29. Lotrimin [Concomitant]
  30. PATADAY [Concomitant]
     Active Substance: OLOPATADINE HYDROCHLORIDE
  31. TOPICORT [Concomitant]
     Active Substance: DESOXIMETASONE
  32. MIDODRINE [Concomitant]
     Active Substance: MIDODRINE

REACTIONS (4)
  - Deafness [Unknown]
  - Fatigue [Unknown]
  - Hypotension [Unknown]
  - Nasopharyngitis [Unknown]
